FAERS Safety Report 24542075 (Version 1)
Quarter: 2024Q4

REPORT INFORMATION
  Report Type: Spontaneous
  Country: IT (occurrence: IT)
  Receive Date: 20241023
  Receipt Date: 20241023
  Transmission Date: 20250115
  Serious: Yes (Other)
  Sender: SANOFI AVENTIS
  Company Number: None

PATIENT
  Age: 44 Year
  Sex: Female
  Weight: 78 kg

DRUGS (6)
  1. ARAVA [Suspect]
     Active Substance: LEFLUNOMIDE
     Indication: Tenosynovitis
     Dosage: 20 MG TABLETS, FIRST AND ONLY ADMINISTRATION OCCURRED ON 16/04/2024
     Route: 048
     Dates: start: 20240416, end: 20240416
  2. ETANERCEPT [Concomitant]
     Active Substance: ETANERCEPT
     Dosage: 50 MG, QW
     Route: 058
  3. FOLIC ACID [Concomitant]
     Active Substance: FOLIC ACID
     Dosage: 5 MG, QW
     Route: 048
  4. RYBELSUS [Concomitant]
     Active Substance: SEMAGLUTIDE
     Indication: Type 2 diabetes mellitus
     Dosage: 14 MG
     Route: 048
  5. NODIGAP [Concomitant]
     Indication: Vitamin D deficiency
     Dosage: 20000 IU, QW
     Route: 048
  6. DUSPATAL [MEBEVERINE HYDROCHLORIDE] [Concomitant]
     Dosage: 200 MG, PRN
     Route: 048

REACTIONS (2)
  - Swollen tongue [Recovered/Resolved]
  - Urticaria [Recovered/Resolved]

NARRATIVE: CASE EVENT DATE: 20240416
